FAERS Safety Report 25905961 (Version 1)
Quarter: 2025Q4

REPORT INFORMATION
  Report Type: Spontaneous
  Country: US (occurrence: None)
  Receive Date: 20251009
  Receipt Date: 20251009
  Transmission Date: 20260117
  Serious: Yes (Hospitalization)
  Sender: FDA-CTU
  Company Number: None

PATIENT
  Age: 81 Year
  Sex: Male
  Weight: 79.38 kg

DRUGS (24)
  1. RINVOQ [Suspect]
     Active Substance: UPADACITINIB
     Indication: Rheumatoid arthritis
     Dosage: TAKEE 1 TABLET QD ORAL
     Dates: start: 20240325, end: 20250929
  2. RINVOQ [Suspect]
     Active Substance: UPADACITINIB
     Indication: Arthropathy
  3. ASPIRIN [Suspect]
     Active Substance: ASPIRIN
     Dosage: DAILY
  4. CELEBREX [Suspect]
     Active Substance: CELECOXIB
  5. METHOTREXATE [Suspect]
     Active Substance: METHOTREXATE
  6. ENBREL [Suspect]
     Active Substance: ETANERCEPT
  7. SULFAMETHOXAZOLE POWDER [Concomitant]
  8. VALACVCLOVIR HCL 500 MG TABLET [Concomitant]
  9. SULFASALAZINE DR 500 MG TABLET DR [Concomitant]
  10. METOPROLOL SUCCINATE [Concomitant]
     Active Substance: METOPROLOL SUCCINATE
  11. VALACYCLOVIR HYDROCHLORIDE [Concomitant]
     Active Substance: VALACYCLOVIR HYDROCHLORIDE
  12. PROTONIX 40MG TABLET DR [Concomitant]
  13. GINKGO 60 MG TABLET [Concomitant]
  14. VITAMIN B-12 500 MCG TABLET [Concomitant]
  15. POTASSIUNM GLUCONATE [Concomitant]
  16. PROSTATE HEALTH 160-100 TABLET [Concomitant]
  17. METAMUCIL 3.4G/1.1G POWDER [Concomitant]
  18. MSM 500 MG CAPSULE [Concomitant]
  19. MINOXIDIL 5% SOLUTION [Concomitant]
  20. GLUCOSAMINE-CHONDROITIN COMPLX [Concomitant]
  21. PRAVASTATIN SODIUM [Concomitant]
     Active Substance: PRAVASTATIN SODIUM
  22. VITAMIN C 500 MG CAPSULE [Concomitant]
  23. CALCIUM 600 MG [Concomitant]
  24. VITAMINS [Concomitant]
     Active Substance: VITAMINS

REACTIONS (3)
  - Pulmonary embolism [None]
  - Alopecia [None]
  - Hepatic enzyme increased [None]

NARRATIVE: CASE EVENT DATE: 20250917
